FAERS Safety Report 4989978-5 (Version None)
Quarter: 2006Q2

REPORT INFORMATION
  Report Type: 
  Country: None (occurrence: None)
  Receive Date: 20060503
  Receipt Date: 20060425
  Transmission Date: 20061013
  Serious: Yes (Death)
  Sender: FDA-Public Use
  Company Number: US-JNJFOC-20060203231

PATIENT
  Sex: Male
  Weight: 106.6 kg

DRUGS (4)
  1. DURAGESIC-100 [Suspect]
     Indication: DRUG USE FOR UNKNOWN INDICATION
     Dosage: (5) 50 MEQ AT ONE TIME
     Route: 062
  2. PERCOCET [Suspect]
  3. PERCOCET [Suspect]
     Indication: DRUG USE FOR UNKNOWN INDICATION
  4. TOPAMAX [Suspect]
     Route: 048

REACTIONS (1)
  - MULTIPLE DRUG OVERDOSE [None]
